FAERS Safety Report 11720026 (Version 1)
Quarter: 2015Q4

REPORT INFORMATION
  Report Type: Spontaneous
  Country: US (occurrence: US)
  Receive Date: 20151110
  Receipt Date: 20151110
  Transmission Date: 20160304
  Serious: No
  Sender: FDA-Public Use
  Company Number: US-PERRIGO-15US011468

PATIENT
  Age: 21 Year
  Sex: Female
  Weight: 98.87 kg

DRUGS (1)
  1. CIMETIDINE  200 MG 022 [Suspect]
     Active Substance: CIMETIDINE
     Indication: DYSPEPSIA
     Dosage: 200 TO 400 MG, QD
     Route: 048
     Dates: start: 20151026, end: 20151028

REACTIONS (4)
  - Drug ineffective [Unknown]
  - Nausea [Not Recovered/Not Resolved]
  - Exposure during pregnancy [Recovered/Resolved]
  - Incorrect dose administered [Recovered/Resolved]

NARRATIVE: CASE EVENT DATE: 20151026
